FAERS Safety Report 9441531 (Version 1)
Quarter: 2013Q3

REPORT INFORMATION
  Report Type: Spontaneous
  Country: FR (occurrence: FR)
  Receive Date: 20130805
  Receipt Date: 20130805
  Transmission Date: 20140515
  Serious: Yes (Hospitalization)
  Sender: FDA-Public Use
  Company Number: FR-UCBSA-094066

PATIENT
  Age: 11 Year
  Sex: Female

DRUGS (2)
  1. QUASYM LP [Suspect]
     Indication: DISTURBANCE IN ATTENTION
     Dosage: UNKNOWN
     Route: 048
     Dates: start: 2012
  2. QUASYM LP [Suspect]
     Indication: DISTURBANCE IN ATTENTION
     Dosage: UNKNOWN
     Route: 048
     Dates: start: 20130707, end: 20130710

REACTIONS (7)
  - Loss of consciousness [Recovered/Resolved]
  - Malaise [Recovered/Resolved]
  - Headache [Unknown]
  - Nausea [Unknown]
  - Vertigo [Unknown]
  - Diplopia [Unknown]
  - Strabismus [Unknown]
